FAERS Safety Report 5913957-4 (Version None)
Quarter: 2008Q4

REPORT INFORMATION
  Report Type: 
  Country: None (occurrence: None)
  Receive Date: 20081009
  Receipt Date: 20080929
  Transmission Date: 20090506
  Serious: Yes (Disabling)
  Sender: FDA-Public Use
  Company Number: US-MERCK-0805USA00708

PATIENT
  Age: 31 Year
  Sex: Male
  Weight: 88 kg

DRUGS (8)
  1. FOSAMAX [Suspect]
     Indication: OSTEOPOROSIS
     Route: 048
     Dates: start: 19990101, end: 20070801
  2. FOSAMAX [Suspect]
     Indication: OSTEOPENIA
     Route: 048
     Dates: start: 19990101, end: 20070801
  3. DYAZIDE [Concomitant]
     Indication: MENIERE'S DISEASE
     Route: 065
     Dates: start: 19950101
  4. NEXIUM [Concomitant]
     Indication: GASTROOESOPHAGEAL REFLUX DISEASE
     Route: 065
     Dates: start: 19990101
  5. ASACOL [Concomitant]
     Indication: COLITIS ULCERATIVE
     Route: 065
     Dates: start: 19940101, end: 20070101
  6. PREDNISONE [Suspect]
     Indication: COLITIS ULCERATIVE
     Route: 065
     Dates: start: 19910101
  7. ACTONEL [Suspect]
     Indication: OSTEOPOROSIS
     Route: 065
     Dates: start: 20070801, end: 20080305
  8. ACTONEL [Suspect]
     Indication: OSTEOPENIA
     Route: 065
     Dates: start: 20070801, end: 20080305

REACTIONS (14)
  - ADVERSE DRUG REACTION [None]
  - BACK PAIN [None]
  - BLOOD BLISTER [None]
  - EAR INFECTION [None]
  - FRACTURE [None]
  - INSOMNIA [None]
  - JAW DISORDER [None]
  - MOUTH ULCERATION [None]
  - OSTEONECROSIS [None]
  - PAROTID DUCT OBSTRUCTION [None]
  - SALIVARY DUCT OBSTRUCTION [None]
  - SIALOADENITIS [None]
  - TOOTHACHE [None]
  - TREMOR [None]
